FAERS Safety Report 10030800 (Version 2)
Quarter: 2014Q1

REPORT INFORMATION
  Report Type: Spontaneous
  Country: US (occurrence: US)
  Receive Date: 20140323
  Receipt Date: 20140323
  Transmission Date: 20141002
  Serious: No
  Sender: FDA-Public Use
  Company Number: US-ALLERGAN-1313839US

PATIENT
  Sex: Female

DRUGS (3)
  1. LATISSE 0.03% [Suspect]
     Indication: GROWTH OF EYELASHES
     Dosage: 1 DROP TO EACH APPLICATOR ONCE AT NIGHT TO UPPER LID EYELASHES
     Route: 061
     Dates: start: 201308
  2. THYROID MEDICATION [Concomitant]
     Indication: THYROID DISORDER
     Dosage: UNK
  3. BLOOD PRESSURE MEDICATION [Concomitant]
     Indication: BLOOD PRESSURE
     Dosage: UNK

REACTIONS (2)
  - Drug ineffective [Not Recovered/Not Resolved]
  - Eye pain [Unknown]
